FAERS Safety Report 6992506-6 (Version None)
Quarter: 2010Q3

REPORT INFORMATION
  Report Type: 
  Country: None (occurrence: None)
  Receive Date: 20100917
  Receipt Date: 20100907
  Transmission Date: 20110219
  Serious: Yes (Other)
  Sender: FDA-Public Use
  Company Number: US-SANOFI-AVENTIS-2010SA054617

PATIENT
  Age: 52 Year
  Sex: Female

DRUGS (2)
  1. OPTICLICK [Suspect]
     Dosage: 18 TO 20 UNITS
     Route: 058
  2. LANTUS [Suspect]
     Dosage: 18 TO 20 UNITS
     Route: 058

REACTIONS (2)
  - HYPOGLYCAEMIA [None]
  - PRODUCT QUALITY ISSUE [None]
